FAERS Safety Report 9330736 (Version 2)
Quarter: 2013Q3

REPORT INFORMATION
  Report Type: Spontaneous
  Country: FR (occurrence: FR)
  Receive Date: 20130605
  Receipt Date: 20130701
  Transmission Date: 20140515
  Serious: Yes (Death)
  Sender: FDA-Public Use
  Company Number: FR-GENZYME-POMP-1003034

PATIENT
  Age: 76 Year
  Sex: Female

DRUGS (5)
  1. MYOZYME [Suspect]
     Indication: GLYCOGEN STORAGE DISEASE TYPE II
     Dosage: UNK
     Route: 042
     Dates: start: 20060124, end: 20130409
  2. KARDEGIC [Concomitant]
     Indication: MYOCARDIAL INFARCTION
     Dosage: 75 MG, UNK
     Dates: start: 2005
  3. BISOPROLOL [Concomitant]
     Indication: MYOCARDIAL INFARCTION
     Dosage: 1 UNK, QD
     Dates: start: 2005
  4. FUROSEMIDE [Concomitant]
     Indication: MYOCARDIAL INFARCTION
     Dosage: 20 MG, UNK
     Dates: start: 2005
  5. PREVISCAN [Concomitant]
     Indication: MYOCARDIAL INFARCTION
     Dosage: 20 UNK, UNK
     Dates: start: 2005

REACTIONS (1)
  - Cardiopulmonary failure [Fatal]
